FAERS Safety Report 11434135 (Version 2)
Quarter: 2015Q3

REPORT INFORMATION
  Report Type: Spontaneous
  Country: US (occurrence: US)
  Receive Date: 20150831
  Receipt Date: 20150914
  Transmission Date: 20151125
  Serious: No
  Sender: FDA-Public Use
  Company Number: US-BIOGENIDEC-2015BI116737

PATIENT
  Age: 57 Year
  Sex: Female

DRUGS (1)
  1. TECFIDERA [Suspect]
     Active Substance: DIMETHYL FUMARATE
     Indication: RELAPSING-REMITTING MULTIPLE SCLEROSIS
     Route: 048
     Dates: start: 20150811, end: 20150812

REACTIONS (13)
  - Pain in extremity [Recovered/Resolved]
  - Constipation [Recovered/Resolved]
  - Malaise [Recovered/Resolved]
  - Adverse drug reaction [Recovered/Resolved]
  - Hearing impaired [Not Recovered/Not Resolved]
  - Cystitis [Recovered/Resolved]
  - Feeling abnormal [Recovered/Resolved]
  - Vomiting [Recovered/Resolved]
  - Cognitive disorder [Not Recovered/Not Resolved]
  - Abdominal pain upper [Recovered/Resolved]
  - Central nervous system lesion [Not Recovered/Not Resolved]
  - Diarrhoea [Recovered/Resolved]
  - Multiple sclerosis relapse [Recovered/Resolved]

NARRATIVE: CASE EVENT DATE: 20150811
